FAERS Safety Report 9964062 (Version 1)
Quarter: 2014Q1

REPORT INFORMATION
  Report Type: Spontaneous
  Country: FR (occurrence: FR)
  Receive Date: 20140305
  Receipt Date: 20140305
  Transmission Date: 20141002
  Serious: Yes (Other)
  Sender: FDA-Public Use
  Company Number: FR-GLAXOSMITHKLINE-B0973096A

PATIENT
  Age: 88 Year
  Sex: Female

DRUGS (9)
  1. TYVERB [Suspect]
     Indication: PRODUCT USED FOR UNKNOWN INDICATION
     Dosage: 250MG UNKNOWN
     Route: 048
     Dates: start: 20131119, end: 20131210
  2. FEMARA [Concomitant]
     Dosage: 2.5MG PER DAY
     Route: 048
     Dates: start: 20131030
  3. AMLODIPIN [Concomitant]
     Dosage: 5MG PER DAY
     Route: 048
  4. HEMIGOXINE NATIVELLE [Concomitant]
     Dosage: .125MG PER DAY
     Route: 048
  5. KERLONE [Concomitant]
     Dosage: 20MG PER DAY
     Route: 048
  6. FLUINDIONE [Concomitant]
     Dosage: 10MG PER DAY
     Route: 048
  7. TOPLEXIL [Concomitant]
     Indication: COUGH
     Dosage: 15ML PER DAY
     Route: 048
     Dates: start: 20131125
  8. PERINDOPRIL [Concomitant]
     Dosage: 2MG PER DAY
     Route: 048
  9. LEVOTHYROX [Concomitant]
     Dosage: 100MCG PER DAY
     Route: 048

REACTIONS (3)
  - Diarrhoea [Recovered/Resolved]
  - Renal failure [Recovered/Resolved]
  - Dehydration [Recovered/Resolved]
